FAERS Safety Report 20155544 (Version 1)
Quarter: 2021Q4

REPORT INFORMATION
  Report Type: Spontaneous
  Country: IT (occurrence: IT)
  Receive Date: 20211207
  Receipt Date: 20211207
  Transmission Date: 20220303
  Serious: Yes (Other)
  Sender: FDA-Public Use
  Company Number: IT-SAMSUNG BIOEPIS-SB-2021-28267

PATIENT
  Age: 42 Year
  Sex: Male

DRUGS (11)
  1. INFLIXIMAB [Suspect]
     Active Substance: INFLIXIMAB
     Indication: Colitis ulcerative
     Dosage: INDUCTION
     Route: 065
  2. INFLIXIMAB [Suspect]
     Active Substance: INFLIXIMAB
     Dosage: UNKNOWN, DOSE INCREASE AFTER SIX MONTHS
     Route: 065
     Dates: start: 2017
  3. INFLIXIMAB [Suspect]
     Active Substance: INFLIXIMAB
     Dosage: UNKNOWN, MAINTENANCE
     Route: 065
     Dates: start: 2018
  4. VEDOLIZUMAB [Suspect]
     Active Substance: VEDOLIZUMAB
     Indication: Colitis ulcerative
     Dosage: INDUCTION
     Route: 065
  5. VEDOLIZUMAB [Suspect]
     Active Substance: VEDOLIZUMAB
     Dosage: AFTER EIGHT MONTHS
     Route: 065
  6. TOFACITINIB CITRATE [Suspect]
     Active Substance: TOFACITINIB CITRATE
     Indication: Colitis ulcerative
     Dosage: INDUCTION
     Route: 065
     Dates: start: 202012
  7. TOFACITINIB CITRATE [Suspect]
     Active Substance: TOFACITINIB CITRATE
     Dosage: MAINTENANCE
     Route: 065
     Dates: start: 202012, end: 202104
  8. TOFACITINIB CITRATE [Suspect]
     Active Substance: TOFACITINIB CITRATE
     Dosage: ESCALATION
     Route: 065
     Dates: start: 202104, end: 202107
  9. TOFACITINIB CITRATE [Suspect]
     Active Substance: TOFACITINIB CITRATE
     Dosage: DE-ESCALATION
     Route: 065
     Dates: start: 202107
  10. PREDNISONE [Concomitant]
     Active Substance: PREDNISONE
     Indication: Colitis ulcerative
     Route: 065
  11. SARS-Cov-2 vaccine [Concomitant]
     Indication: COVID-19 immunisation
     Dosage: UNKNOWN, MRNA, 2 DOSES
     Route: 065
     Dates: start: 202105

REACTIONS (2)
  - Colitis ulcerative [Recovering/Resolving]
  - Therapeutic product effect decreased [Unknown]

NARRATIVE: CASE EVENT DATE: 20170101
